FAERS Safety Report 4759053-3 (Version None)
Quarter: 2005Q3

REPORT INFORMATION
  Report Type: 
  Country: None (occurrence: None)
  Receive Date: 20050901
  Receipt Date: 20050829
  Transmission Date: 20060218
  Serious: Yes (Death)
  Sender: FDA-Public Use
  Company Number: DE-GLAXOSMITHKLINE-D0047396A

PATIENT
  Age: 85 Year
  Sex: Male
  Weight: 84 kg

DRUGS (2)
  1. AVANDAMET [Suspect]
     Dosage: 1002MG TWICE PER DAY
     Route: 048
     Dates: start: 20041221
  2. METFORMIN [Concomitant]
     Dosage: 500MG UNKNOWN
     Route: 048
     Dates: end: 20041220

REACTIONS (1)
  - DEATH [None]
